FAERS Safety Report 20232578 (Version 4)
Quarter: 2022Q1

REPORT INFORMATION
  Report Type: Spontaneous
  Country: CN (occurrence: CN)
  Receive Date: 20211227
  Receipt Date: 20220126
  Transmission Date: 20220423
  Serious: Yes (Hospitalization)
  Sender: FDA-Public Use
  Company Number: CN-PFIZER INC-202101832453

PATIENT
  Age: 66 Year
  Sex: Male

DRUGS (3)
  1. MEROPENEM [Suspect]
     Active Substance: MEROPENEM
     Indication: Pneumonia
     Dosage: 1 G, 2X/DAY
     Route: 042
     Dates: start: 20211111, end: 20211113
  2. MEROPENEM [Suspect]
     Active Substance: MEROPENEM
     Dosage: 0.5 MG, 2X/DAY
     Route: 042
     Dates: start: 20211114
  3. ZYVOX [Suspect]
     Active Substance: LINEZOLID
     Indication: Pneumonia
     Dosage: 600 MG, 2X/DAY
     Route: 042
     Dates: start: 20211111

REACTIONS (1)
  - Acute kidney injury [Unknown]

NARRATIVE: CASE EVENT DATE: 20211114
